FAERS Safety Report 9643926 (Version 2)
Quarter: 2014Q1

REPORT INFORMATION
  Report Type: Spontaneous
  Country: DE (occurrence: GB)
  Receive Date: 20131024
  Receipt Date: 20140129
  Transmission Date: 20141002
  Serious: Yes (Death)
  Sender: FDA-Public Use
  Company Number: GB-FRI-1000050505

PATIENT
  Age: 91 Year
  Sex: Female

DRUGS (7)
  1. MEMANTINE [Suspect]
     Indication: DEMENTIA
     Dosage: 5 MG
     Route: 048
     Dates: start: 20130904, end: 20130911
  2. MEMANTINE [Suspect]
     Dosage: 10 MG
     Route: 048
     Dates: start: 20130912, end: 20130916
  3. BUPRENORPHINE [Concomitant]
     Dosage: 5 MCG PER HOUR PATCH/ONE PATCH Q 7 DAYS
     Route: 062
  4. CALCICHEW [Concomitant]
  5. COLECALCIFEROL [Concomitant]
     Dosage: 20 MG
  6. LACTULOSE [Concomitant]
  7. SOLIFENACIN [Concomitant]
     Dosage: 20 MG

REACTIONS (1)
  - Thrombosis [Fatal]
